FAERS Safety Report 6081336-8 (Version None)
Quarter: 2009Q1

REPORT INFORMATION
  Report Type: 
  Country: None (occurrence: None)
  Receive Date: 20090218
  Receipt Date: 20090211
  Transmission Date: 20090719
  Serious: Yes (Death)
  Sender: FDA-Public Use
  Company Number: NZ-CELGENEUS-118-20785-09020096

PATIENT
  Sex: Male

DRUGS (15)
  1. THALIDOMIDE [Suspect]
     Indication: MULTIPLE MYELOMA
     Route: 048
     Dates: start: 20080521, end: 20081127
  2. THALIDOMIDE [Suspect]
     Route: 048
     Dates: start: 20081128
  3. CEFEPIME [Concomitant]
     Indication: SEPSIS
     Route: 065
     Dates: start: 20090119
  4. DEXAMETHASONE [Concomitant]
     Route: 051
     Dates: start: 20090114, end: 20090121
  5. CYCLOPHOSPHAMIDE [Concomitant]
     Route: 051
     Dates: start: 20090114, end: 20090121
  6. CLEXANE [Concomitant]
     Indication: DRUG USE FOR UNKNOWN INDICATION
     Route: 065
  7. NILSTAT [Concomitant]
     Indication: ORAL FUNGAL INFECTION
  8. ALLOPURINOL [Concomitant]
     Indication: DRUG USE FOR UNKNOWN INDICATION
  9. ACETAMINOPHEN [Concomitant]
     Indication: CHEST PAIN
     Route: 065
  10. OXYCONTIN [Concomitant]
     Indication: CHEST PAIN
     Route: 065
  11. MORPHINE [Concomitant]
     Indication: CHEST PAIN
     Route: 065
  12. CEFUROXIME [Concomitant]
     Indication: DRUG USE FOR UNKNOWN INDICATION
     Route: 065
  13. BLOOD TRANSFUSION [Concomitant]
     Indication: DRUG USE FOR UNKNOWN INDICATION
     Dosage: 2 UNITS
     Route: 065
  14. METOPROLOL TARTRATE [Concomitant]
     Indication: ATRIAL FIBRILLATION
     Route: 065
  15. VANCOMYCIN HCL [Concomitant]
     Indication: DRUG USE FOR UNKNOWN INDICATION
     Route: 051

REACTIONS (1)
  - SEPTIC SHOCK [None]
